FAERS Safety Report 10394126 (Version 4)
Quarter: 2014Q4

REPORT INFORMATION
  Report Type: Spontaneous
  Country: JP (occurrence: JP)
  Receive Date: 20140819
  Receipt Date: 20141210
  Transmission Date: 20150528
  Serious: Yes (Death, Other)
  Sender: FDA-Public Use
  Company Number: PHHY2010JP096493

PATIENT
  Age: 82 Year
  Sex: Male

DRUGS (1)
  1. EXJADE [Suspect]
     Active Substance: DEFERASIROX
     Indication: MYELODYSPLASTIC SYNDROME
     Dosage: 8 MG/KG, QD
     Route: 048
     Dates: start: 20081010

REACTIONS (6)
  - Myelodysplastic syndrome [Unknown]
  - Death [Fatal]
  - Blood creatinine increased [Unknown]
  - Disease progression [Unknown]
  - Angina pectoris [Unknown]
  - Renal impairment [Unknown]

NARRATIVE: CASE EVENT DATE: 20091002
